FAERS Safety Report 18197420 (Version 6)
Quarter: 2023Q4

REPORT INFORMATION
  Report Type: Spontaneous
  Country: US (occurrence: US)
  Receive Date: 20200826
  Receipt Date: 20231127
  Transmission Date: 20240110
  Serious: Yes (Hospitalization, Disabling, Other)
  Sender: FDA-Public Use
  Company Number: US-SPARK THERAPEUTICS, INC.-US-SPK-20-00097

PATIENT
  Age: 27 Year
  Sex: Female

DRUGS (15)
  1. LUXTURNA [Suspect]
     Active Substance: VORETIGENE NEPARVOVEC-RZYL
     Indication: RPE65 gene mutation
     Dosage: 0.3 ML, RIGHT EYE, SUBRETINAL USE
     Dates: start: 20200617, end: 20200617
  2. LUXTURNA [Suspect]
     Active Substance: VORETIGENE NEPARVOVEC-RZYL
     Dosage: 0.3 ML, LEFT EYE, SUBRETINAL USE
     Dates: start: 20200624, end: 20200624
  3. LUXTURNA [Suspect]
     Active Substance: VORETIGENE NEPARVOVEC-RZYL
     Indication: RPE65 gene mutation
     Dosage: RIGHT EYE
     Dates: start: 20200617, end: 20200617
  4. LUXTURNA [Suspect]
     Active Substance: VORETIGENE NEPARVOVEC-RZYL
     Dosage: LEFT EYE
     Dates: start: 20200624, end: 20200624
  5. PREDNISONE [Concomitant]
     Active Substance: PREDNISONE
     Indication: Product used for unknown indication
     Dosage: AFTER FIVE DAYS REDUCE TO 30 MG FOR THREE DAYS, THEN 20 MG FOR THREE DAYS THEN 10 MG FOR THREE DAYS.
     Route: 048
     Dates: start: 20200614, end: 20200629
  6. PREDNISONE [Concomitant]
     Active Substance: PREDNISONE
     Dosage: 10 MG FOUR TABLETS
     Route: 048
     Dates: start: 20200629
  7. PREDNISOLONE ACETATE [Concomitant]
     Active Substance: PREDNISOLONE ACETATE
     Indication: Product used for unknown indication
     Dosage: UNK UNK
     Dates: start: 20200617
  8. PREDNISOLONE ACETATE [Concomitant]
     Active Substance: PREDNISOLONE ACETATE
     Dosage: 1 GTT DROPS, Q8H
     Dates: start: 20200702
  9. POLYTRIM [Concomitant]
     Active Substance: POLYMYXIN B SULFATE\TRIMETHOPRIM SULFATE
     Indication: Product used for unknown indication
     Dosage: 1 GTT DROPS
     Dates: start: 20200618
  10. SANCUSO [Concomitant]
     Active Substance: GRANISETRON
     Indication: Product used for unknown indication
     Dosage: 3.1 MG/24 HR
     Dates: start: 20200617
  11. MYDFRIN [Concomitant]
     Active Substance: PHENYLEPHRINE HYDROCHLORIDE
     Indication: Product used for unknown indication
     Dosage: 1 GTT DROPS
     Dates: start: 20200617
  12. MYDFRIN [Concomitant]
     Active Substance: PHENYLEPHRINE HYDROCHLORIDE
     Dosage: 1 GTT DROPS
     Dates: start: 20200624
  13. GARAMYCIN [Concomitant]
     Active Substance: GENTAMICIN SULFATE
     Indication: Product used for unknown indication
     Dosage: 1 GTT DROPS, Q0.5H
     Dates: start: 20200617
  14. CYCLOGYL [Concomitant]
     Active Substance: CYCLOPENTOLATE HYDROCHLORIDE
     Indication: Product used for unknown indication
     Dosage: 1 GTT DROPS
     Dates: start: 20200617
  15. CYCLOGYL [Concomitant]
     Active Substance: CYCLOPENTOLATE HYDROCHLORIDE
     Dosage: 1 GTT DROPS
     Dates: start: 20200624

REACTIONS (3)
  - Sympathetic ophthalmia [Not Recovered/Not Resolved]
  - Vogt-Koyanagi-Harada disease [Recovering/Resolving]
  - Vogt-Koyanagi-Harada disease [Recovering/Resolving]

NARRATIVE: CASE EVENT DATE: 20200801
